FAERS Safety Report 7119944-5 (Version None)
Quarter: 2010Q4

REPORT INFORMATION
  Report Type: 
  Country: None (occurrence: None)
  Receive Date: 20101123
  Receipt Date: 20101118
  Transmission Date: 20110411
  Serious: Yes (Hospitalization)
  Sender: FDA-Public Use
  Company Number: IT-PFIZER INC-2010154133

PATIENT
  Age: 60 Year
  Sex: Female

DRUGS (1)
  1. UNASYN [Suspect]
     Indication: BRONCHITIS
     Dosage: ONE DOSAGE UNIT
     Route: 030
     Dates: start: 20101116, end: 20101116

REACTIONS (4)
  - HYPOTENSION [None]
  - HYPOXIA [None]
  - MALAISE [None]
  - PRURITUS GENERALISED [None]
